FAERS Safety Report 25156171 (Version 2)
Quarter: 2025Q3

REPORT INFORMATION
  Report Type: Report from Study
  Country: GB (occurrence: GB)
  Receive Date: 20250403
  Receipt Date: 20250809
  Transmission Date: 20251021
  Serious: Yes (Other)
  Sender: ALEXION PHARMACEUTICALS
  Company Number: GB-AstraZeneca-CH-00837117A

PATIENT
  Age: 77 Year
  Sex: Female

DRUGS (2)
  1. BENRALIZUMAB [Suspect]
     Active Substance: BENRALIZUMAB
     Indication: Asthma
     Dosage: 30 MILLIGRAM, Q4W
  2. DONEPEZIL [Concomitant]
     Active Substance: DONEPEZIL
     Route: 065

REACTIONS (3)
  - Vascular dementia [Unknown]
  - Productive cough [Unknown]
  - Illness [Unknown]
